FAERS Safety Report 5909441-4 (Version None)
Quarter: 2008Q4

REPORT INFORMATION
  Report Type: 
  Country: None (occurrence: None)
  Receive Date: 20081006
  Receipt Date: 20080926
  Transmission Date: 20090506
  Serious: Yes (Other)
  Sender: FDA-Public Use
  Company Number: CN-PFIZER INC-2008081444

PATIENT

DRUGS (1)
  1. SOLU-MEDROL [Suspect]
     Route: 042
     Dates: start: 20080101, end: 20080101

REACTIONS (3)
  - GENERALISED ERYTHEMA [None]
  - RASH [None]
  - TACHYPNOEA [None]
